FAERS Safety Report 4682599-3 (Version None)
Quarter: 2005Q2

REPORT INFORMATION
  Report Type: 
  Country: None (occurrence: None)
  Receive Date: 20050606
  Receipt Date: 20050525
  Transmission Date: 20051028
  Serious: Yes (Death)
  Sender: FDA-Public Use
  Company Number: ES-MERCK-0506USA00555

PATIENT
  Age: 4 Year
  Sex: Male

DRUGS (5)
  1. COSMOGEN [Suspect]
     Indication: NEOPLASM MALIGNANT
     Route: 042
  2. ETOPOSIDE [Concomitant]
     Indication: NEOPLASM MALIGNANT
     Route: 065
  3. VINCRISTINE SULFATE [Concomitant]
     Indication: NEOPLASM MALIGNANT
     Route: 065
  4. IFOSFAMIDE [Concomitant]
     Indication: NEOPLASM MALIGNANT
     Route: 065
  5. DOXORUBICIN [Concomitant]
     Indication: NEOPLASM MALIGNANT
     Route: 065

REACTIONS (2)
  - NEOPLASM MALIGNANT [None]
  - PERITONEAL CARCINOMA [None]
